FAERS Safety Report 9826840 (Version 1)
Quarter: 2014Q1

REPORT INFORMATION
  Report Type: Spontaneous
  Country: US (occurrence: US)
  Receive Date: 20140117
  Receipt Date: 20140117
  Transmission Date: 20141002
  Serious: Yes (Hospitalization)
  Sender: FDA-Public Use
  Company Number: US-GLAXOSMITHKLINE-A1003754A

PATIENT
  Age: 73 Year
  Sex: Female

DRUGS (11)
  1. PROMACTA [Suspect]
     Indication: IMMUNE THROMBOCYTOPENIC PURPURA
     Dosage: 50MG PER DAY
     Route: 048
     Dates: start: 20121023, end: 20121126
  2. POTASSIUM CHLORIDE [Concomitant]
  3. LEVOTHYROXINE [Concomitant]
  4. HYDROCHLOROTHIAZIDE [Concomitant]
  5. CARVEDILOL [Concomitant]
  6. DOCUSATE [Concomitant]
  7. SENNA [Concomitant]
  8. FOLIC ACID [Concomitant]
  9. LISINOPRIL [Concomitant]
  10. SIMVASTATIN [Concomitant]
  11. CALTRATE 600 + D [Concomitant]

REACTIONS (1)
  - Platelet count decreased [Unknown]
